FAERS Safety Report 6069810-1 (Version None)
Quarter: 2009Q1

REPORT INFORMATION
  Report Type: 
  Country: None (occurrence: None)
  Receive Date: 20090204
  Receipt Date: 20090204
  Transmission Date: 20090719
  Serious: Yes (Life-Threatening, Hospitalization)
  Sender: FDA-Public Use
  Company Number: None

PATIENT
  Age: 44 Year
  Sex: Male
  Weight: 78.4723 kg

DRUGS (1)
  1. ULTRAM [Suspect]
     Indication: PAIN
     Dosage: 300 TO 400 MG A DAY PO
     Route: 048
     Dates: start: 20080915, end: 20090103

REACTIONS (9)
  - BEDRIDDEN [None]
  - BRAIN INJURY [None]
  - CONVULSION [None]
  - EYE ROLLING [None]
  - FEAR [None]
  - ILL-DEFINED DISORDER [None]
  - LOSS OF CONSCIOUSNESS [None]
  - MUSCLE SPASMS [None]
  - PAIN [None]
